FAERS Safety Report 5512591-8 (Version None)
Quarter: 2007Q4

REPORT INFORMATION
  Report Type: 
  Country: None (occurrence: None)
  Receive Date: 20071107
  Receipt Date: 20071022
  Transmission Date: 20080405
  Serious: Yes (Hospitalization)
  Sender: FDA-Public Use
  Company Number: 2007002026

PATIENT
  Age: 78 Year
  Sex: Male

DRUGS (1)
  1. TARCEVA [Suspect]
     Indication: LUNG CANCER METASTATIC
     Dosage: 150 MG, QD, ORAL
     Route: 048
     Dates: end: 20070916

REACTIONS (4)
  - CONFUSIONAL STATE [None]
  - ENURESIS [None]
  - FALL [None]
  - VERTIGO [None]
